FAERS Safety Report 16742287 (Version 1)
Quarter: 2019Q3

REPORT INFORMATION
  Report Type: Report from Study
  Country: US (occurrence: US)
  Receive Date: 20190826
  Receipt Date: 20190826
  Transmission Date: 20191005
  Serious: Yes (Other)
  Sender: FDA-Public Use
  Company Number: US-OTSUKA-2019_029760

PATIENT
  Age: 69 Year
  Sex: Male

DRUGS (1)
  1. DEXTROMETHORPHAN/QUINIDINE [Suspect]
     Active Substance: DEXTROMETHORPHAN HYDROBROMIDE\QUINIDINE SULFATE
     Indication: AFFECT LABILITY
     Dosage: 20/10 MG, UNK
     Route: 065

REACTIONS (9)
  - Hypoacusis [Unknown]
  - Gait disturbance [Unknown]
  - Coordination abnormal [Unknown]
  - Confusional state [Unknown]
  - Cerebrovascular accident [Unknown]
  - Muscle atrophy [Unknown]
  - Pain in extremity [Unknown]
  - Urinary incontinence [Unknown]
  - Muscular weakness [Unknown]

NARRATIVE: CASE EVENT DATE: 20180405
